FAERS Safety Report 9105328 (Version 1)
Quarter: 2013Q1

REPORT INFORMATION
  Report Type: Spontaneous
  Country: FR (occurrence: FR)
  Receive Date: 20130220
  Receipt Date: 20130220
  Transmission Date: 20140127
  Serious: Yes (Hospitalization)
  Sender: FDA-Public Use
  Company Number: FR-GLAXOSMITHKLINE-B0645506A

PATIENT
  Age: 86 Year
  Sex: Male

DRUGS (5)
  1. DEROXAT [Suspect]
     Indication: PRODUCT USED FOR UNKNOWN INDICATION
     Route: 048
     Dates: start: 20100210, end: 20100318
  2. KARDEGIC [Suspect]
     Indication: PRODUCT USED FOR UNKNOWN INDICATION
     Dosage: 75MG PER DAY
     Route: 048
     Dates: end: 20100318
  3. PROSCAR [Suspect]
     Indication: PRODUCT USED FOR UNKNOWN INDICATION
     Route: 048
     Dates: end: 20100318
  4. SMECTA [Concomitant]
     Route: 065
     Dates: end: 20100318
  5. HEPTAMYL [Concomitant]
     Indication: HYPOTENSION
     Route: 065
     Dates: start: 20100301

REACTIONS (2)
  - Idiopathic thrombocytopenic purpura [Recovered/Resolved]
  - Pruritus [Unknown]
